FAERS Safety Report 8463633-1 (Version None)
Quarter: 2012Q2

REPORT INFORMATION
  Report Type: 
  Country: None (occurrence: None)
  Receive Date: 20120625
  Receipt Date: 20120618
  Transmission Date: 20120825
  Serious: Yes (Other)
  Sender: FDA-Public Use
  Company Number: US-ROCHE-1078862

PATIENT
  Sex: Female

DRUGS (3)
  1. MYCOPHENOLATE MOFETIL [Suspect]
     Indication: PRODUCT USED FOR UNKNOWN INDICATION
     Dates: end: 20111001
  2. TACROLIMUS [Suspect]
     Indication: IMMUNOSUPPRESSION
  3. IMURAN [Suspect]
     Indication: IMMUNOSUPPRESSION
     Route: 048

REACTIONS (4)
  - ECTOPIC PREGNANCY [None]
  - MATERNAL EXPOSURE DURING PREGNANCY [None]
  - ABORTION SPONTANEOUS [None]
  - HYPERTENSIVE CRISIS [None]
